FAERS Safety Report 11932435 (Version 2)
Quarter: 2016Q1

REPORT INFORMATION
  Report Type: Spontaneous
  Country: JP (occurrence: JP)
  Receive Date: 20160120
  Receipt Date: 20160129
  Transmission Date: 20160526
  Serious: Yes (Other)
  Sender: FDA-Public Use
  Company Number: JP-GE HEALTHCARE MEDICAL DIAGNOSTICS-OMPQ-PR-1601L-0055

PATIENT
  Sex: Male

DRUGS (9)
  1. OMNIPAQUE [Suspect]
     Active Substance: IOHEXOL
     Indication: DIAGNOSTIC PROCEDURE
  2. EPINEPHRINE. [Concomitant]
     Active Substance: EPINEPHRINE
  3. HYDROCORTISONE. [Concomitant]
     Active Substance: HYDROCORTISONE
  4. IOPAMIDOL [Suspect]
     Active Substance: IOPAMIDOL
     Indication: CORONARY ARTERY DISEASE
     Dosage: DOSE NOT REPORTED
     Route: 065
  5. OMNIPAQUE [Suspect]
     Active Substance: IOHEXOL
     Indication: CORONARY ARTERY DISEASE
     Dosage: DOSE NOT REPORTED
     Route: 065
  6. IOPAMIDOL [Suspect]
     Active Substance: IOPAMIDOL
     Indication: DIAGNOSTIC PROCEDURE
  7. PREDNISOLONE. [Concomitant]
     Active Substance: PREDNISOLONE
  8. IOPAQUE [Suspect]
     Active Substance: IOHEXOL
     Indication: CORONARY ARTERY DISEASE
     Route: 065
  9. IOPAQUE [Suspect]
     Active Substance: IOHEXOL
     Indication: DIAGNOSTIC PROCEDURE

REACTIONS (1)
  - Stevens-Johnson syndrome [Recovering/Resolving]
